FAERS Safety Report 14053697 (Version 1)
Quarter: 2017Q4

REPORT INFORMATION
  Report Type: Spontaneous
  Country: US (occurrence: None)
  Receive Date: 20171006
  Receipt Date: 20171006
  Transmission Date: 20180321
  Serious: Yes (Hospitalization)
  Sender: FDA-Public Use
  Company Number: None

PATIENT
  Age: 77 Year
  Sex: Female

DRUGS (13)
  1. ELIQUIS [Concomitant]
     Active Substance: APIXABAN
  2. PRAVASTATIN. [Concomitant]
     Active Substance: PRAVASTATIN
  3. NOVOLOG [Concomitant]
     Active Substance: INSULIN ASPART
  4. FENOFIBRATE. [Concomitant]
     Active Substance: FENOFIBRATE
  5. PREVACID [Concomitant]
     Active Substance: LANSOPRAZOLE
  6. TOUJEO SOLO [Concomitant]
  7. TRADJENTA [Concomitant]
     Active Substance: LINAGLIPTIN
  8. VITAMIN D [Concomitant]
     Active Substance: CHOLECALCIFEROL
  9. DILTIAZEM. [Concomitant]
     Active Substance: DILTIAZEM
  10. MYRBETRIQ [Concomitant]
     Active Substance: MIRABEGRON
  11. ASPIRIN. [Concomitant]
     Active Substance: ASPIRIN
  12. CALCIUM GLUC [Concomitant]
  13. BOSULIF [Suspect]
     Active Substance: BOSUTINIB MONOHYDRATE
     Indication: CHRONIC MYELOID LEUKAEMIA
     Route: 048
     Dates: start: 20170809

REACTIONS (2)
  - Nausea [None]
  - Cardiac valve disease [None]

NARRATIVE: CASE EVENT DATE: 201709
